FAERS Safety Report 11269498 (Version 1)
Quarter: 2015Q3

REPORT INFORMATION
  Report Type: Spontaneous
  Country: DE (occurrence: DE)
  Receive Date: 20150714
  Receipt Date: 20150714
  Transmission Date: 20151125
  Serious: Yes (Hospitalization)
  Sender: FDA-Public Use
  Company Number: DE-SUN PHARMACEUTICAL INDUSTRIES LTD-2015RR-100136

PATIENT

DRUGS (8)
  1. ACC [Concomitant]
     Active Substance: ACETYLCYSTEINE
     Indication: AIRWAY SECRETION CLEARANCE THERAPY
     Dosage: 600 MG, UNK
     Route: 048
     Dates: start: 20141118
  2. ASPIRIN. [Concomitant]
     Active Substance: ASPIRIN
     Indication: ACUTE MYOCARDIAL INFARCTION
     Dosage: 100 MG, UNK
     Route: 048
     Dates: start: 20141118
  3. ATORVASTATIN [Suspect]
     Active Substance: ATORVASTATIN
     Indication: ACUTE MYOCARDIAL INFARCTION
     Dosage: 20 MG, TOTAL
     Route: 048
     Dates: start: 20141118
  4. NEBIVOLOL. [Concomitant]
     Active Substance: NEBIVOLOL
     Indication: CORONARY ARTERY DISEASE
     Dosage: 2.5 MG, UNK
     Route: 048
  5. FUROSEMID [Concomitant]
     Active Substance: FUROSEMIDE
     Indication: POLYURIA
     Dosage: 20 MG, UNK
     Route: 042
     Dates: start: 20141118
  6. OXYCODON/NALOXON [Concomitant]
     Indication: POSTOPERATIVE ANALGESIA
     Dosage: 1 DF, UNK
     Route: 048
     Dates: start: 20141118
  7. PARACETAMOL [Concomitant]
     Active Substance: ACETAMINOPHEN
     Indication: POSTOPERATIVE ANALGESIA
     Dosage: 1 G, UNK
     Route: 042
     Dates: start: 20141117, end: 20141118
  8. PIRITRAMID [Concomitant]
     Indication: POSTOPERATIVE ANALGESIA
     Dosage: 3.75 MG, UNK
     Route: 042
     Dates: start: 20141117, end: 20141118

REACTIONS (3)
  - Myoglobin blood increased [Recovered/Resolved]
  - Rhabdomyolysis [Recovered/Resolved]
  - Blood creatine phosphokinase increased [Recovered/Resolved]

NARRATIVE: CASE EVENT DATE: 20141119
